FAERS Safety Report 23247664 (Version 1)
Quarter: 2023Q4

REPORT INFORMATION
  Report Type: Spontaneous
  Country: GB (occurrence: GB)
  Receive Date: 20231130
  Receipt Date: 20231130
  Transmission Date: 20240110
  Serious: Yes (Other)
  Sender: FDA-Public Use
  Company Number: None

PATIENT
  Age: 63 Year
  Sex: Female
  Weight: 61 kg

DRUGS (10)
  1. DOXYCYCLINE [Suspect]
     Active Substance: DOXYCYCLINE
     Indication: Infection
     Dosage: 200 MG, 1X/DAY, TAKE TWO NOW THEN ONE DAILY FOR 4 DAYS TO TREAT INFECTION
     Route: 048
     Dates: start: 20231120
  2. DOXYCYCLINE [Suspect]
     Active Substance: DOXYCYCLINE
     Dosage: 100 MG, DAILY, TAKE TWO NOW THEN ONE DAILY FOR 4 DAYS TO TREAT INFECTION
  3. ACYCLOVIR [Concomitant]
     Active Substance: ACYCLOVIR
     Indication: Prophylaxis
     Dosage: 1 DF, 1X/DAY
     Dates: start: 20230821
  4. CALCIPOTRIENE [Concomitant]
     Active Substance: CALCIPOTRIENE
     Dosage: 1 DF, 1X/DAY
     Route: 061
     Dates: start: 20220615
  5. ESTRADIOL [Concomitant]
     Active Substance: ESTRADIOL
     Dosage: 1 DF, 1X/DAY
     Route: 061
     Dates: start: 20230426
  6. FEXOFENADINE [Concomitant]
     Active Substance: FEXOFENADINE HYDROCHLORIDE
     Dosage: 1 DF, 1X/DAY
     Dates: start: 20230111
  7. FLUOXETINE [Concomitant]
     Active Substance: FLUOXETINE HYDROCHLORIDE
     Indication: Depressed mood
     Dosage: 1 DF, 1X/DAY, WITH FOOD.
     Route: 048
     Dates: start: 20230717
  8. PROGESTERONE [Concomitant]
     Active Substance: PROGESTERONE
     Dosage: UNK, USE AS DIRECTED
     Dates: start: 20230426
  9. RIZATRIPTAN [Concomitant]
     Active Substance: RIZATRIPTAN
     Indication: Migraine
     Dosage: UNK UNK, AS NEEDED
     Dates: start: 20230111
  10. ZEROCREAM [Concomitant]
     Dosage: APPLY AS DIRECTED. THIS IS A PARAFFIN-BASED PRO...
     Route: 061
     Dates: start: 20230111

REACTIONS (1)
  - Psoriasis [Unknown]
